FAERS Safety Report 6018080-9 (Version None)
Quarter: 2008Q4

REPORT INFORMATION
  Report Type: 
  Country: None (occurrence: None)
  Receive Date: 20081223
  Receipt Date: 20081212
  Transmission Date: 20090506
  Serious: Yes (Other)
  Sender: FDA-Public Use
  Company Number: US-ROCHE-603063

PATIENT
  Age: 11 Year
  Sex: Female

DRUGS (7)
  1. VALCYTE [Suspect]
     Indication: RENAL TRANSPLANT
     Dosage: OTHER INDICATION: EPSTEIN-BARR VIRUS (EBV)
     Route: 065
  2. GENGRAF [Concomitant]
  3. NEXIUM [Concomitant]
  4. PREDNISONE TAB [Concomitant]
  5. IRON [Concomitant]
  6. NITROFURANTOIN [Concomitant]
  7. SULFONAMIDE NOS [Concomitant]
     Dosage: SULFA

REACTIONS (2)
  - DEAFNESS UNILATERAL [None]
  - VISUAL ACUITY REDUCED [None]
